FAERS Safety Report 8317902 (Version 3)
Quarter: 2012Q4

REPORT INFORMATION
  Report Type: 
  Country: CA (occurrence: CA)
  Receive Date: 20111221
  Receipt Date: 20121109
  Transmission Date: 20130627
  Serious: Yes (Other)
  Sender: FDA-Public Use
  Company Number: CA-NAPPMUNDI-CAN-2011-0002462

PATIENT
  Age: 55 None
  Sex: Female
  Weight: 65.76 kg

DRUGS (13)
  1. BUTRANS [Suspect]
     Indication: BACK PAIN
     Dosage: 20 mcg, q1h
     Route: 062
  2. BUTRANS [Interacting]
     Dosage: 15 mcg, q1h
     Route: 062
     Dates: start: 2011, end: 2011
  3. BUTRANS [Interacting]
     Dosage: 10 mcg, q1h
     Route: 062
     Dates: end: 2011
  4. BUTRANS [Interacting]
     Dosage: 5 mcg, q1h
     Route: 062
     Dates: end: 2011
  5. CESAMET [Suspect]
     Indication: BACK PAIN
     Dosage: 0.25 mg, daily
     Route: 048
     Dates: end: 201108
  6. CLONAZEPAM [Suspect]
     Indication: ANXIETY
     Dosage: 1 mg, tid prn
     Route: 048
     Dates: start: 20111211
  7. BACLOFEN [Suspect]
     Indication: MUSCLE SPASMS
     Dosage: 10-20 mg, tid prn
  8. CIPRALEX [Interacting]
     Indication: DEPRESSION
     Dosage: 10 mg, daily
     Route: 048
     Dates: start: 201202
  9. CIPRALEX [Interacting]
     Dosage: 20 mg, daily
     Route: 048
     Dates: end: 201108
  10. CIPRO XL [Concomitant]
     Indication: URINARY TRACT INFECTION
     Dosage: 1000 mg, UNK
     Route: 048
     Dates: start: 20111208
  11. FUROSEMIDE [Concomitant]
     Indication: BLOOD PRESSURE INCREASED
     Dosage: 20 mg, daily
     Route: 048
  12. BISOPROLOL [Concomitant]
     Indication: PRODUCT USED FOR UNKNOWN INDICATION
     Dosage: 5 mg, daily
     Route: 048
     Dates: start: 2009
  13. WELLBUTRIN XL [Concomitant]
     Indication: PRODUCT USED FOR UNKNOWN INDICATION
     Dosage: 300 mg, daily
     Route: 048
     Dates: start: 2010

REACTIONS (21)
  - Dyspnoea [Recovered/Resolved]
  - Hypopnoea [Recovered/Resolved]
  - Drug interaction [Recovered/Resolved]
  - Urinary tract infection [Recovered/Resolved]
  - Disorientation [Recovered/Resolved]
  - Gait disturbance [Recovered/Resolved]
  - Pulse pressure increased [Recovered/Resolved]
  - Palpitations [Recovered/Resolved]
  - Headache [Recovered/Resolved]
  - Anxiety [Recovered/Resolved]
  - Dizziness [Recovered/Resolved]
  - Balance disorder [Recovered/Resolved]
  - Asthenia [Recovered/Resolved]
  - Vomiting [Recovered/Resolved]
  - Diarrhoea [Recovered/Resolved]
  - Hallucination [Recovered/Resolved]
  - Muscle spasms [Recovered/Resolved]
  - Disturbance in attention [Recovered/Resolved]
  - Somnolence [Recovered/Resolved]
  - Euphoric mood [Recovered/Resolved]
  - Abdominal discomfort [Recovered/Resolved]
